FAERS Safety Report 22113086 (Version 1)
Quarter: 2023Q1

REPORT INFORMATION
  Report Type: Spontaneous
  Country: US (occurrence: US)
  Receive Date: 20230320
  Receipt Date: 20230320
  Transmission Date: 20230417
  Serious: No
  Sender: FDA-Public Use
  Company Number: US-BIOVITRUM-2023-US0-2337

PATIENT
  Age: 76 Year
  Sex: Female

DRUGS (2)
  1. KINERET [Suspect]
     Active Substance: ANAKINRA
     Indication: Rheumatoid arthritis
     Dosage: DAILY
     Route: 058
  2. KINERET [Suspect]
     Active Substance: ANAKINRA
     Dosage: 100MG/0.67ML?DAILY
     Route: 058
     Dates: start: 20230119

REACTIONS (2)
  - Injection site reaction [Recovering/Resolving]
  - Drug ineffective [Unknown]
